FAERS Safety Report 4855811-5 (Version None)
Quarter: 2005Q4

REPORT INFORMATION
  Report Type: 
  Country: None (occurrence: None)
  Receive Date: 20051216
  Receipt Date: 20051006
  Transmission Date: 20060501
  Serious: Yes (Death, Hospitalization, Other)
  Sender: FDA-Public Use
  Company Number: US-MERCK-0510USA05989

PATIENT
  Age: 78 Year
  Sex: Female

DRUGS (10)
  1. DARVOCET-N 100 [Concomitant]
     Indication: ARTHRITIS
     Route: 048
     Dates: start: 20040216, end: 20040705
  2. DARVOCET-N 100 [Concomitant]
     Indication: ARTHRALGIA
     Route: 048
     Dates: start: 20040216, end: 20040705
  3. VIOXX [Suspect]
     Indication: ARTHRITIS
     Route: 048
     Dates: start: 20040216, end: 20040705
  4. VIOXX [Suspect]
     Indication: ARTHRALGIA
     Route: 048
     Dates: start: 20040216, end: 20040705
  5. HEPARIN SODIUM [Concomitant]
     Route: 058
  6. RESTORIL [Concomitant]
     Indication: INSOMNIA
     Route: 065
  7. SYNTHROID [Concomitant]
     Route: 048
  8. LOTREL [Concomitant]
     Route: 048
  9. LORATADINE [Concomitant]
     Route: 048
  10. PAXIL [Concomitant]
     Route: 048

REACTIONS (14)
  - ACUTE MYOCARDIAL INFARCTION [None]
  - ARTHRALGIA [None]
  - CARDIAC ANEURYSM [None]
  - CARDIAC DISORDER [None]
  - CEREBRAL ISCHAEMIA [None]
  - CEREBROVASCULAR ACCIDENT [None]
  - CORONARY ARTERY DISEASE [None]
  - HYPERTENSION [None]
  - INSOMNIA [None]
  - MITRAL VALVE INCOMPETENCE [None]
  - NERVOUS SYSTEM DISORDER [None]
  - SEPSIS [None]
  - SINUS BRADYCARDIA [None]
  - TRANSIENT ISCHAEMIC ATTACK [None]
